FAERS Safety Report 5566789-3 (Version None)
Quarter: 2007Q4

REPORT INFORMATION
  Report Type: 
  Country: None (occurrence: None)
  Receive Date: 20071219
  Receipt Date: 20071218
  Transmission Date: 20080405
  Serious: Yes (Death)
  Sender: FDA-Public Use
  Company Number: A0699546A

PATIENT
  Age: 89 Year
  Sex: Female

DRUGS (8)
  1. COREG [Suspect]
     Indication: CARDIAC FAILURE CONGESTIVE
     Dosage: 6.25MG TWICE PER DAY
     Route: 048
     Dates: end: 20071210
  2. HYDROCHLOROTHIAZIDE [Concomitant]
  3. LISINOPRIL [Concomitant]
  4. DIGITEK [Concomitant]
  5. LASIX [Concomitant]
  6. LIPITOR [Concomitant]
  7. ARIMIDEX [Concomitant]
  8. ATIVAN [Concomitant]

REACTIONS (1)
  - GENERAL PHYSICAL HEALTH DETERIORATION [None]
